FAERS Safety Report 9767159 (Version 1)
Quarter: 2013Q4

REPORT INFORMATION
  Report Type: Spontaneous
  Country: FR (occurrence: FR)
  Receive Date: 20131217
  Receipt Date: 20131217
  Transmission Date: 20140711
  Serious: Yes (Other)
  Sender: FDA-Public Use
  Company Number: FR-BAYER-2013-151446

PATIENT
  Age: 30 Year
  Sex: Female

DRUGS (1)
  1. JASMINE [Suspect]
     Indication: CONTRACEPTION
     Dosage: 1 DF, QD
     Route: 048
     Dates: start: 200211, end: 201209

REACTIONS (2)
  - Photosensitivity reaction [Recovered/Resolved]
  - Occipital neuralgia [Recovered/Resolved]
